FAERS Safety Report 4689000-4 (Version None)
Quarter: 2005Q2

REPORT INFORMATION
  Report Type: 
  Country: None (occurrence: None)
  Receive Date: 20050613
  Receipt Date: 20050531
  Transmission Date: 20051028
  Serious: Yes (Hospitalization)
  Sender: FDA-Public Use
  Company Number: FR-NOVOPROD-244533

PATIENT
  Age: 42 Year
  Sex: Female

DRUGS (3)
  1. NORDITROPIN SIMPLEXX [Suspect]
     Indication: ILL-DEFINED DISORDER
     Dosage: UNK, UNK
     Dates: end: 20041125
  2. HYDROCORTISONE [Concomitant]
     Dosage: 20 MG, UNK
  3. LEVOTHYROX [Concomitant]
     Dosage: 100 UG, UNK

REACTIONS (2)
  - ABORTION SPONTANEOUS [None]
  - DRUG EXPOSURE DURING PREGNANCY [None]
